FAERS Safety Report 4376785-X (Version None)
Quarter: 2004Q2

REPORT INFORMATION
  Report Type: 
  Country: None (occurrence: None)
  Receive Date: 20040609
  Receipt Date: 20040514
  Transmission Date: 20050107
  Serious: Yes (Other)
  Sender: FDA-Public Use
  Company Number: 2004213425US

PATIENT
  Sex: Female

DRUGS (1)
  1. BEXTRA [Suspect]
     Dates: start: 20030615, end: 20030620

REACTIONS (1)
  - STEVENS-JOHNSON SYNDROME [None]
